FAERS Safety Report 6826738-4 (Version None)
Quarter: 2010Q3

REPORT INFORMATION
  Report Type: 
  Country: None (occurrence: None)
  Receive Date: 20100709
  Receipt Date: 20100701
  Transmission Date: 20110219
  Serious: Yes (Other)
  Sender: FDA-Public Use
  Company Number: ES-PFIZER INC-2010045537

PATIENT
  Age: 67 Year
  Sex: Female
  Weight: 66.667 kg

DRUGS (8)
  1. CARDYL [Suspect]
     Indication: PROPHYLAXIS
     Dosage: 80 MG, 1X/DAY
     Route: 048
     Dates: start: 20100219, end: 20100330
  2. ADIRO [Concomitant]
     Dosage: UNK
     Route: 048
     Dates: start: 20070101
  3. PANTOPRAZOL [Concomitant]
     Dosage: 40 MG, UNK
     Route: 048
     Dates: start: 20100219
  4. LISINOPRIL [Concomitant]
     Dosage: 5 MG, UNK
     Route: 048
     Dates: start: 20100219
  5. ATENOLOL [Concomitant]
     Dosage: 12.5 MG, UNK
     Route: 048
     Dates: start: 20040101
  6. LANTUS [Concomitant]
     Dosage: UNK
     Route: 058
     Dates: start: 19670101
  7. NOVORAPID [Concomitant]
     Dosage: UNK
     Route: 058
     Dates: start: 19670101
  8. CLOPIDOGREL [Concomitant]
     Dosage: UNK
     Route: 048
     Dates: start: 20100219

REACTIONS (2)
  - BLOOD GLUCOSE INCREASED [None]
  - BLOOD PRESSURE INCREASED [None]
